FAERS Safety Report 8196872-8 (Version None)
Quarter: 2012Q1

REPORT INFORMATION
  Report Type: 
  Country: None (occurrence: None)
  Receive Date: 20120309
  Receipt Date: 20120228
  Transmission Date: 20120608
  Serious: Yes (Hospitalization)
  Sender: FDA-Public Use
  Company Number: FR-SANOFI-AVENTIS-2012SA013701

PATIENT
  Age: 63 Year
  Sex: Male

DRUGS (2)
  1. MYTELASE [Suspect]
     Indication: OCULAR MYASTHENIA
     Route: 048
     Dates: start: 20100901
  2. MYTELASE [Suspect]
     Route: 048
     Dates: start: 20120103, end: 20120110

REACTIONS (8)
  - MIOSIS [None]
  - FUNCTIONAL GASTROINTESTINAL DISORDER [None]
  - MALAISE [None]
  - CHOLINERGIC SYNDROME [None]
  - MYALGIA [None]
  - HYPERHIDROSIS [None]
  - SALIVARY HYPERSECRETION [None]
  - DYSPNOEA [None]
